FAERS Safety Report 24913380 (Version 1)
Quarter: 2025Q1

REPORT INFORMATION
  Report Type: Spontaneous
  Country: CN (occurrence: CN)
  Receive Date: 20250201
  Receipt Date: 20250201
  Transmission Date: 20250408
  Serious: Yes (Other)
  Sender: BAXTER
  Company Number: None

PATIENT
  Age: 60 Year
  Sex: Female
  Weight: 72.5 kg

DRUGS (10)
  1. CYCLOPHOSPHAMIDE [Suspect]
     Active Substance: CYCLOPHOSPHAMIDE
     Indication: Breast cancer female
     Route: 041
     Dates: start: 20250116, end: 20250116
  2. CYCLOPHOSPHAMIDE [Suspect]
     Active Substance: CYCLOPHOSPHAMIDE
     Indication: Chemotherapy
  3. SODIUM CHLORIDE [Suspect]
     Active Substance: SODIUM CHLORIDE
     Indication: Medication dilution
     Route: 041
     Dates: start: 20250116, end: 20250116
  4. SODIUM CHLORIDE [Suspect]
     Active Substance: SODIUM CHLORIDE
     Route: 041
     Dates: start: 20250116, end: 20250116
  5. SODIUM CHLORIDE [Suspect]
     Active Substance: SODIUM CHLORIDE
     Route: 041
     Dates: start: 20250117, end: 20250117
  6. WATER FOR INJECTION [Suspect]
     Active Substance: WATER
     Indication: Medication dilution
     Route: 041
     Dates: start: 20250116, end: 20250116
  7. DOCETAXEL [Suspect]
     Active Substance: DOCETAXEL
     Indication: Breast cancer female
     Route: 041
     Dates: start: 20250117, end: 20250117
  8. DOCETAXEL [Suspect]
     Active Substance: DOCETAXEL
     Indication: Chemotherapy
  9. EPIRUBICIN HYDROCHLORIDE [Suspect]
     Active Substance: EPIRUBICIN HYDROCHLORIDE
     Indication: Breast cancer female
     Route: 041
     Dates: start: 20250116, end: 20250116
  10. EPIRUBICIN HYDROCHLORIDE [Suspect]
     Active Substance: EPIRUBICIN HYDROCHLORIDE
     Indication: Chemotherapy

REACTIONS (1)
  - Myelosuppression [Unknown]

NARRATIVE: CASE EVENT DATE: 20250123
